FAERS Safety Report 8786636 (Version 2)
Quarter: 2013Q1

REPORT INFORMATION
  Report Type: Report from Study
  Country: JP (occurrence: JP)
  Receive Date: 20120914
  Receipt Date: 20130322
  Transmission Date: 20140127
  Serious: No
  Sender: FDA-Public Use
  Company Number: JP-VERTEX PHARMACEUTICAL INC.-AE-2012-008968

PATIENT
  Age: 71 Year
  Sex: Female

DRUGS (6)
  1. VX-950 (TELAPREVIR) [Suspect]
     Indication: CHRONIC HEPATITIS C
     Dosage: 1500 MG, QD
     Route: 048
     Dates: start: 20120524, end: 20120530
  2. REBETOL [Suspect]
     Indication: CHRONIC HEPATITIS C
     Dosage: 400 MG, QD
     Route: 048
     Dates: start: 20120524, end: 20120604
  3. PEGINTERFERON ALFA-2B [Concomitant]
     Dosage: 1.5 ?G/KG, QW
     Route: 058
     Dates: start: 20120524, end: 20120530
  4. MICARDIS [Concomitant]
     Dosage: 40 MG, QD
     Route: 048
  5. MYSLEE [Concomitant]
     Dosage: 5 MG, QD
     Route: 048
  6. NIFEDIPINE [Concomitant]
     Dosage: 20 MG, QD
     Route: 048

REACTIONS (1)
  - Drug eruption [Recovered/Resolved]
